FAERS Safety Report 6018999-9 (Version None)
Quarter: 2008Q4

REPORT INFORMATION
  Report Type: 
  Country: None (occurrence: None)
  Receive Date: 20081224
  Receipt Date: 20081219
  Transmission Date: 20090506
  Serious: Yes (Other)
  Sender: FDA-Public Use
  Company Number: BR-JNJFOC-20081102490

PATIENT
  Sex: Female
  Weight: 4.2 kg

DRUGS (1)
  1. MICRONOR [Suspect]
     Indication: DRUG EXPOSURE DURING PREGNANCY

REACTIONS (3)
  - GASTROOESOPHAGEAL REFLUX DISEASE [None]
  - LACTOSE INTOLERANCE [None]
  - PREMATURE BABY [None]
